FAERS Safety Report 6478837-7 (Version None)
Quarter: 2009Q4

REPORT INFORMATION
  Report Type: 
  Country: None (occurrence: None)
  Receive Date: 20091202
  Receipt Date: 20091119
  Transmission Date: 20100525
  Serious: Yes (Death)
  Sender: FDA-Public Use
  Company Number: 008124

PATIENT
  Sex: Female

DRUGS (1)
  1. SAMSCA [Suspect]
     Dosage: 30 MG, QD, ORAL
     Route: 048

REACTIONS (1)
  - DEATH [None]
